FAERS Safety Report 9822908 (Version 3)
Quarter: 2015Q3

REPORT INFORMATION
  Report Type: Spontaneous
  Country: US (occurrence: US)
  Receive Date: 20140116
  Receipt Date: 20150806
  Transmission Date: 20151125
  Serious: No
  Sender: FDA-Public Use
  Company Number: US-GILEAD-2010-0032986

PATIENT
  Age: 69 Year
  Sex: Female
  Weight: 104.33 kg

DRUGS (10)
  1. PRINIVIL [Concomitant]
     Active Substance: LISINOPRIL
  2. ASPIRIN. [Concomitant]
     Active Substance: ASPIRIN
  3. CRESTOR [Concomitant]
     Active Substance: ROSUVASTATIN CALCIUM
  4. TYLENOL [Concomitant]
     Active Substance: ACETAMINOPHEN
  5. XANAX [Concomitant]
     Active Substance: ALPRAZOLAM
  6. TRAMADOL. [Concomitant]
     Active Substance: TRAMADOL
  7. VALPROIC ACID. [Concomitant]
     Active Substance: VALPROIC ACID
  8. FOSAMAX [Concomitant]
     Active Substance: ALENDRONATE SODIUM
  9. LETAIRIS [Suspect]
     Active Substance: AMBRISENTAN
     Indication: PULMONARY ARTERIAL HYPERTENSION
     Route: 048
     Dates: start: 20100811, end: 20101210
  10. OXYGEN. [Concomitant]
     Active Substance: OXYGEN

REACTIONS (3)
  - Urticaria [Unknown]
  - Nasal congestion [Unknown]
  - Hot flush [Unknown]
